FAERS Safety Report 25384953 (Version 1)
Quarter: 2025Q2

REPORT INFORMATION
  Report Type: Report from Study
  Country: IT (occurrence: IT)
  Receive Date: 20250602
  Receipt Date: 20250602
  Transmission Date: 20250716
  Serious: Yes (Death)
  Sender: TEVA
  Company Number: None

PATIENT
  Age: 10 Month
  Sex: Male
  Weight: 7 kg

DRUGS (6)
  1. METHOTREXATE [Suspect]
     Active Substance: METHOTREXATE
     Indication: Acute myeloid leukaemia
     Route: 037
     Dates: start: 20241209, end: 20241209
  2. ACETAMINOPHEN [Concomitant]
     Active Substance: ACETAMINOPHEN
     Indication: Pyrexia
     Route: 065
     Dates: start: 20241206
  3. CYTARABINE [Suspect]
     Active Substance: CYTARABINE
     Indication: Acute myeloid leukaemia
     Route: 037
     Dates: start: 20241209, end: 20241209
  4. METHYLPREDNISOLONE [Suspect]
     Active Substance: METHYLPREDNISOLONE
     Indication: Acute myeloid leukaemia
     Route: 037
     Dates: start: 20241209, end: 20241209
  5. CYTARABINE [Suspect]
     Active Substance: CYTARABINE
     Indication: Acute myeloid leukaemia
     Dosage: 500 MG TWICE A DAY
     Route: 042
     Dates: start: 20241202, end: 20241205
  6. ETOPOSIDE [Suspect]
     Active Substance: ETOPOSIDE
     Indication: Acute myeloid leukaemia
     Route: 042
     Dates: start: 20241203, end: 20241207

REACTIONS (5)
  - Congenital aplasia [Fatal]
  - Vomiting [Fatal]
  - Pyrexia [Fatal]
  - Diarrhoea [Fatal]
  - Sepsis [Fatal]

NARRATIVE: CASE EVENT DATE: 20241206
